FAERS Safety Report 15464686 (Version 1)
Quarter: 2018Q4

REPORT INFORMATION
  Report Type: Spontaneous
  Country: IT (occurrence: IT)
  Receive Date: 20181004
  Receipt Date: 20181004
  Transmission Date: 20190204
  Serious: Yes (Death, Other)
  Sender: FDA-Public Use
  Company Number: PHHY2018IT110580

PATIENT
  Age: 17 Year
  Sex: Male

DRUGS (1)
  1. PAZOPANIB [Suspect]
     Active Substance: PAZOPANIB
     Indication: OSTEOSARCOMA METASTATIC
     Dosage: 800 MG, QD
     Route: 065

REACTIONS (5)
  - Platelet toxicity [Unknown]
  - Product use in unapproved indication [Unknown]
  - Pneumothorax [Unknown]
  - Osteosarcoma metastatic [Fatal]
  - Malignant neoplasm progression [Fatal]
